FAERS Safety Report 8797898 (Version 2)
Quarter: 2013Q1

REPORT INFORMATION
  Report Type: Spontaneous
  Country: US (occurrence: None)
  Receive Date: 20120914
  Receipt Date: 20121018
  Transmission Date: 20140127
  Serious: Yes (Hospitalization)
  Sender: FDA-Public Use
  Company Number: TPA2012A06413

PATIENT
  Age: 59 Year
  Sex: Male
  Weight: 79.38 kg

DRUGS (7)
  1. ULORIC [Suspect]
     Indication: GOUT
     Dosage: 40 MG, 1 IN 1 D
     Route: 048
     Dates: start: 2010
  2. VERAPAMIL [Concomitant]
  3. PANTOPRAZOLE [Concomitant]
  4. PREDNISONE [Concomitant]
  5. SPIRONOLACTONE [Concomitant]
  6. MAGNESIUM [Concomitant]
  7. PRAVASTATIN [Concomitant]

REACTIONS (2)
  - Ulcer haemorrhage [None]
  - Cerebrovascular accident [None]
